FAERS Safety Report 23916358 (Version 1)
Quarter: 2024Q2

REPORT INFORMATION
  Report Type: Report from Study
  Country: US (occurrence: US)
  Receive Date: 20240529
  Receipt Date: 20240529
  Transmission Date: 20240715
  Serious: No
  Sender: FDA-Public Use
  Company Number: US-BIOVITRUM-2021US2088

PATIENT
  Age: 74 Year
  Sex: Female

DRUGS (2)
  1. KINERET [Suspect]
     Active Substance: ANAKINRA
     Indication: Product used for unknown indication
     Dosage: 100MG, QF
     Route: 058
  2. KINERET [Suspect]
     Active Substance: ANAKINRA
     Dosage: 100MG DAILY
     Route: 058
     Dates: start: 20180118

REACTIONS (5)
  - Product dose omission issue [Unknown]
  - Loss of personal independence in daily activities [Unknown]
  - Nodule [Unknown]
  - Product availability issue [Unknown]
  - Product use issue [Unknown]
